FAERS Safety Report 16777388 (Version 2)
Quarter: 2019Q4

REPORT INFORMATION
  Report Type: Spontaneous
  Country: US (occurrence: US)
  Receive Date: 20190905
  Receipt Date: 20191023
  Transmission Date: 20200122
  Serious: Yes (Hospitalization, Other)
  Sender: FDA-Public Use
  Company Number: US-ASTRAZENECA-2019SF24923

PATIENT
  Age: 64 Year
  Sex: Female
  Weight: 88 kg

DRUGS (4)
  1. VICTOZA [Concomitant]
     Active Substance: LIRAGLUTIDE
  2. FARXIGA [Suspect]
     Active Substance: DAPAGLIFLOZIN PROPANEDIOL
     Dosage: 10.0MG UNKNOWN
     Route: 048
     Dates: end: 20190825
  3. OZEMPIC [Concomitant]
     Active Substance: SEMAGLUTIDE
  4. GLIMEPERIDE [Concomitant]
     Active Substance: GLIMEPIRIDE
     Dosage: 4.0MG UNKNOWN

REACTIONS (4)
  - Genital discharge [Unknown]
  - Fungal infection [Unknown]
  - Kidney infection [Unknown]
  - Genital blister [Unknown]

NARRATIVE: CASE EVENT DATE: 20190825
